FAERS Safety Report 19098357 (Version 2)
Quarter: 2021Q2

REPORT INFORMATION
  Report Type: Spontaneous
  Country: US (occurrence: US)
  Receive Date: 20210406
  Receipt Date: 20210514
  Transmission Date: 20210717
  Serious: No
  Sender: FDA-Public Use
  Company Number: US-BAYER-2021-118022

PATIENT
  Age: 33 Year
  Sex: Female
  Weight: 191.9 kg

DRUGS (6)
  1. CHOLECALCIFEROL [Concomitant]
     Active Substance: CHOLECALCIFEROL
  2. LABETALOL [Concomitant]
     Active Substance: LABETALOL\LABETALOL HYDROCHLORIDE
  3. MIRENA [Suspect]
     Active Substance: LEVONORGESTREL
     Indication: CONTRACEPTION
     Dosage: 20  ?G PER DAY CONTINUOUSLY
     Route: 015
     Dates: start: 20200309, end: 20210301
  4. FERROUS SULFATE. [Concomitant]
     Active Substance: FERROUS SULFATE
  5. MINERALS NOS;VITAMINS NOS [Concomitant]
     Active Substance: MINERALS\VITAMINS
  6. BETADINE ALCOOLICO [Concomitant]
     Active Substance: POVIDONE-IODINE
     Dosage: UNK
     Dates: start: 20200309, end: 20200309

REACTIONS (6)
  - Device issue [None]
  - Uterine leiomyoma [None]
  - Abdominal pain [None]
  - Device expulsion [Recovered/Resolved]
  - Vaginal haemorrhage [None]
  - Heavy menstrual bleeding [None]

NARRATIVE: CASE EVENT DATE: 202012
